FAERS Safety Report 4303727-5 (Version None)
Quarter: 2004Q1

REPORT INFORMATION
  Report Type: 
  Country: None (occurrence: None)
  Receive Date: 20040224
  Receipt Date: 20040224
  Transmission Date: 20041129
  Serious: Yes (Hospitalization, Disabling)
  Sender: FDA-Public Use
  Company Number: None

PATIENT
  Age: 44 Year
  Sex: Female
  Weight: 65.7716 kg

DRUGS (1)
  1. PREDNISONE [Suspect]
     Indication: SYSTEMIC LUPUS ERYTHEMATOSUS
     Dosage: 17MG PO DAILY
     Route: 048

REACTIONS (5)
  - ABDOMINAL PAIN [None]
  - BACK PAIN [None]
  - MYALGIA [None]
  - MYOPATHY [None]
  - OEDEMA PERIPHERAL [None]
